FAERS Safety Report 4426652-8 (Version None)
Quarter: 2004Q3

REPORT INFORMATION
  Report Type: 
  Country: None (occurrence: None)
  Receive Date: 20040811
  Receipt Date: 20040730
  Transmission Date: 20050211
  Serious: Yes (Other)
  Sender: FDA-Public Use
  Company Number: US-GDP-0411181

PATIENT
  Age: 53 Year
  Sex: Female

DRUGS (3)
  1. METROCREAM (METRONIDAZOLE) TOPICAL CREAM [Suspect]
     Indication: ROSACEA
     Dosage: 1 APAP BID TP
     Route: 061
     Dates: start: 20040301, end: 20040301
  2. ELIDEL [Suspect]
     Dates: start: 20030301
  3. BIOELEMENTS SKIN CARE PRODUCTS [Suspect]
     Dates: start: 20040301

REACTIONS (3)
  - ANGIONEUROTIC OEDEMA [None]
  - DRY SKIN [None]
  - ERYTHEMA [None]
